FAERS Safety Report 9532341 (Version 1)
Quarter: 2013Q3

REPORT INFORMATION
  Report Type: Spontaneous
  Country: US (occurrence: US)
  Receive Date: 20130918
  Receipt Date: 20130918
  Transmission Date: 20140515
  Serious: No
  Sender: FDA-Public Use
  Company Number: US-PURDUE-USA-2011-0076265

PATIENT
  Sex: Male

DRUGS (3)
  1. BUTRANS [Suspect]
     Indication: BACK PAIN
     Dosage: 50 MCG/HR, UNK
     Route: 062
     Dates: start: 20110428, end: 20110708
  2. OXYCODONE HCL IMMEDIATE RELEASE (91-490) [Concomitant]
     Indication: BACK PAIN
     Dosage: 30 MG, TID
     Dates: start: 20100823
  3. METHADONE [Concomitant]
     Indication: BACK PAIN
     Dosage: 10 MG, TID
     Dates: start: 20100519

REACTIONS (2)
  - Hyperhidrosis [Not Recovered/Not Resolved]
  - Inadequate analgesia [Unknown]
